FAERS Safety Report 18792561 (Version 2)
Quarter: 2021Q1

REPORT INFORMATION
  Report Type: Other
  Country: JP (occurrence: JP)
  Receive Date: 20210127
  Receipt Date: 20210202
  Transmission Date: 20210419
  Serious: Yes (Other)
  Sender: FDA-Public Use
  Company Number: JP-ROCHE-2755078

PATIENT

DRUGS (1)
  1. ATEZOLIZUMAB. [Suspect]
     Active Substance: ATEZOLIZUMAB
     Indication: NON-SMALL CELL LUNG CANCER
     Route: 042

REACTIONS (8)
  - Interstitial lung disease [Unknown]
  - Hepatitis [Unknown]
  - Thyroid disorder [Unknown]
  - Colitis [Unknown]
  - Bronchial haemorrhage [Unknown]
  - Cholangitis [Unknown]
  - Rash [Unknown]
  - Hepatic function abnormal [Unknown]
